FAERS Safety Report 9197908 (Version 1)
Quarter: 2013Q1

REPORT INFORMATION
  Report Type: Spontaneous
  Country: CA (occurrence: CA)
  Receive Date: 20130328
  Receipt Date: 20130328
  Transmission Date: 20140127
  Serious: Yes (Disabling)
  Sender: FDA-Public Use
  Company Number: CA-TEVA-394614USA

PATIENT
  Age: 85 Year
  Sex: Female
  Weight: 56.75 kg

DRUGS (8)
  1. ALENDRONATE [Suspect]
     Dosage: 10 MILLIGRAM DAILY;
     Route: 048
  2. ARICEPT [Concomitant]
  3. CALCIUM [Concomitant]
  4. HYDROCHLOROTHIAZIDE [Concomitant]
  5. LOPERAMIDE [Concomitant]
  6. OLANZAPINE [Concomitant]
  7. TYLENOL [Concomitant]
  8. VITAMIN D [Concomitant]

REACTIONS (1)
  - Mouth ulceration [Recovered/Resolved]
